FAERS Safety Report 17652852 (Version 1)
Quarter: 2020Q2

REPORT INFORMATION
  Report Type: Spontaneous
  Country: US (occurrence: US)
  Receive Date: 20200409
  Receipt Date: 20200409
  Transmission Date: 20200713
  Serious: Yes (Hospitalization, Other)
  Sender: FDA-Public Use
  Company Number: US-PURDUE PHARMA-USA-2020-0151101

PATIENT
  Sex: Female

DRUGS (6)
  1. HYDROCODONE BITARTRATE AND ACETAMINOPHEN [Suspect]
     Active Substance: ACETAMINOPHEN\HYDROCODONE BITARTRATE
     Indication: PRODUCT USED FOR UNKNOWN INDICATION
     Route: 065
  2. DILAUDID [Suspect]
     Active Substance: HYDROMORPHONE HYDROCHLORIDE
     Indication: NEOPLASM MALIGNANT
     Dosage: 4 MG, Q4- 6H
     Route: 048
     Dates: start: 201502, end: 201912
  3. HYDROCODONE BITARTRATE (SIMILAR TO NDA 206627) [Suspect]
     Active Substance: HYDROCODONE BITARTRATE
     Indication: NEOPLASM MALIGNANT
     Dosage: 10 MG, Q4H
     Route: 048
     Dates: start: 201502, end: 201912
  4. FENTANYL. [Suspect]
     Active Substance: FENTANYL
     Indication: NEOPLASM MALIGNANT
     Dosage: 25 MCG, UNK
     Route: 062
  5. MORPHINE SULFATE EXTENDED-RELEASE TABLETS (RHODES 74-769, 74-862) [Suspect]
     Active Substance: MORPHINE SULFATE
     Indication: NEOPLASM MALIGNANT
     Dosage: 15 MG, BID
     Route: 048
     Dates: start: 201502, end: 201912
  6. HYDROMORPHONE HCL (SIMILAR TO 19-892) [Suspect]
     Active Substance: HYDROMORPHONE HYDROCHLORIDE
     Indication: NEOPLASM MALIGNANT
     Dosage: 2 MG, UNK
     Route: 048
     Dates: end: 2019

REACTIONS (9)
  - Diarrhoea [Unknown]
  - Drug withdrawal syndrome [Unknown]
  - Deep vein thrombosis [Unknown]
  - Drug dependence [Unknown]
  - Headache [Unknown]
  - Nausea [Unknown]
  - Vomiting [Unknown]
  - Tremor [Unknown]
  - Pulmonary embolism [Recovered/Resolved]

NARRATIVE: CASE EVENT DATE: 2015
